FAERS Safety Report 18263005 (Version 5)
Quarter: 2022Q1

REPORT INFORMATION
  Report Type: Report from Study
  Country: None (occurrence: GB)
  Receive Date: 20200914
  Receipt Date: 20220107
  Transmission Date: 20220423
  Serious: Yes (Death, Hospitalization, Other)
  Sender: FDA-Public Use
  Company Number: GB-AKCEA THERAPEUTICS-2020IS001430

PATIENT
  Age: 60 Year
  Sex: Male

DRUGS (3)
  1. TEGSEDI [Suspect]
     Active Substance: INOTERSEN SODIUM
     Indication: Hereditary neuropathic amyloidosis
     Route: 058
  2. DEVICE [Suspect]
     Active Substance: DEVICE
  3. CLARITHROMYCIN [Suspect]
     Active Substance: CLARITHROMYCIN

REACTIONS (19)
  - Loss of control of legs [Unknown]
  - Fluid retention [Not Recovered/Not Resolved]
  - Oedema [Not Recovered/Not Resolved]
  - Fall [Unknown]
  - Wound [Unknown]
  - Abdominal pain upper [Not Recovered/Not Resolved]
  - Constipation [Not Recovered/Not Resolved]
  - Night sweats [Unknown]
  - Malaise [Unknown]
  - Urinary retention [Unknown]
  - Confusional state [Unknown]
  - Peripheral swelling [Unknown]
  - Nausea [Unknown]
  - Somnolence [Unknown]
  - Rash [Unknown]
  - Sepsis [Fatal]
  - Urinary tract infection [Fatal]
  - Chest discomfort [Fatal]
  - Liver disorder [Fatal]

NARRATIVE: CASE EVENT DATE: 20200829
